FAERS Safety Report 9031952 (Version 2)
Quarter: 2013Q2

REPORT INFORMATION
  Report Type: Spontaneous
  Country: PT (occurrence: PT)
  Receive Date: 20130125
  Receipt Date: 20130411
  Transmission Date: 20140414
  Serious: Yes (Hospitalization)
  Sender: FDA-Public Use
  Company Number: PT-JNJFOC-20130108503

PATIENT
  Age: 12 Year
  Sex: Male
  Weight: 43 kg

DRUGS (2)
  1. CONCERTA [Suspect]
     Indication: DISTURBANCE IN ATTENTION
     Route: 048
     Dates: start: 20121122, end: 20121218
  2. CARBAMAZEPINE [Suspect]
     Indication: BENIGN ROLANDIC EPILEPSY
     Route: 048
     Dates: start: 20121122, end: 20121218

REACTIONS (6)
  - Rash papular [Recovered/Resolved]
  - Pruritus [Recovered/Resolved]
  - Face oedema [Recovered/Resolved]
  - Localised oedema [Recovered/Resolved]
  - Alanine aminotransferase increased [Recovered/Resolved]
  - Aspartate aminotransferase increased [Recovered/Resolved]
